FAERS Safety Report 7219687-3 (Version None)
Quarter: 2011Q1

REPORT INFORMATION
  Report Type: 
  Country: None (occurrence: None)
  Receive Date: 20110103
  Receipt Date: 20101220
  Transmission Date: 20110831
  Serious: No
  Sender: FDA-Public Use
  Company Number: SP1201000310

PATIENT
  Age: 49 Year
  Sex: Female
  Weight: 78.5 kg

DRUGS (3)
  1. AMITIZA [Suspect]
     Indication: CONSTIPATION
     Dosage: 24 MCG, BID, ORAL, 8 MCG, BID, ORAL, 16 MCG, BID, ORAL
     Route: 048
     Dates: start: 20100923, end: 20100101
  2. AMITIZA [Suspect]
     Indication: CONSTIPATION
     Dosage: 24 MCG, BID, ORAL, 8 MCG, BID, ORAL, 16 MCG, BID, ORAL
     Route: 048
     Dates: start: 20100101, end: 20100101
  3. AMITIZA [Suspect]
     Indication: CONSTIPATION
     Dosage: 24 MCG, BID, ORAL, 8 MCG, BID, ORAL, 16 MCG, BID, ORAL
     Route: 048
     Dates: start: 20100101

REACTIONS (1)
  - DYSPNOEA [None]
